FAERS Safety Report 13035979 (Version 1)
Quarter: 2016Q4

REPORT INFORMATION
  Report Type: Spontaneous
  Country: US (occurrence: US)
  Receive Date: 20161216
  Receipt Date: 20161216
  Transmission Date: 20170207
  Serious: Yes (Other)
  Sender: FDA-Public Use
  Company Number: US-SEBELA IRELAND LIMITED-2016SEB01534

PATIENT
  Age: 17 Year

DRUGS (5)
  1. ENBREL [Suspect]
     Active Substance: ETANERCEPT
     Dosage: UNK
  2. IMURAN [Suspect]
     Active Substance: AZATHIOPRINE
  3. METHOTREXATE. [Suspect]
     Active Substance: METHOTREXATE
  4. HUMIRA [Suspect]
     Active Substance: ADALIMUMAB
     Route: 058
  5. REMICADE [Suspect]
     Active Substance: INFLIXIMAB

REACTIONS (9)
  - Postoperative adhesion [Unknown]
  - Fluid retention [Unknown]
  - Muscle atrophy [Recovering/Resolving]
  - Blindness transient [Unknown]
  - Cataract [Unknown]
  - Vitreous detachment [Unknown]
  - Uveitis [Recovering/Resolving]
  - Retinitis [Unknown]
  - Arthritis reactive [Unknown]

NARRATIVE: CASE EVENT DATE: 2005
